FAERS Safety Report 8459819-2 (Version None)
Quarter: 2012Q2

REPORT INFORMATION
  Report Type: 
  Country: None (occurrence: None)
  Receive Date: 20120622
  Receipt Date: 20120615
  Transmission Date: 20120825
  Serious: Yes (Other)
  Sender: FDA-Public Use
  Company Number: PHHY2011US19740

PATIENT
  Sex: Male

DRUGS (8)
  1. AFINITOR [Suspect]
     Indication: TUBEROUS SCLEROSIS
     Dosage: 10 MG
     Route: 048
     Dates: start: 20110129
  2. DITROPAN [Concomitant]
  3. RISPERDAL [Concomitant]
  4. RAPAMUNE [Concomitant]
  5. CARBATROL [Concomitant]
  6. LEXAPRO [Concomitant]
  7. MIRALAX [Concomitant]
  8. AFINITOR [Suspect]
     Indication: ASTROCYTOMA, LOW GRADE

REACTIONS (4)
  - ONYCHOCLASIS [None]
  - INFLAMMATION [None]
  - ACNE [None]
  - PAIN IN EXTREMITY [None]
